FAERS Safety Report 9311684 (Version 1)
Quarter: 2013Q1

REPORT INFORMATION
  Report Type: Spontaneous
  Country: US (occurrence: None)
  Receive Date: 20130225
  Receipt Date: 20130225
  Transmission Date: 20140127
  Serious: Yes (Other)
  Sender: FDA-Public Use
  Company Number: ADR-2010-8607

PATIENT
  Age: 4 Year
  Sex: Male

DRUGS (1)
  1. LIORESAL [Suspect]

REACTIONS (4)
  - Upper respiratory tract infection [None]
  - Muscle tightness [None]
  - Device kink [None]
  - Device occlusion [None]
